FAERS Safety Report 5038108-2 (Version None)
Quarter: 2006Q2

REPORT INFORMATION
  Report Type: 
  Country: None (occurrence: None)
  Receive Date: 20060602
  Receipt Date: 20060411
  Transmission Date: 20061013
  Serious: Yes (Other)
  Sender: FDA-Public Use
  Company Number: 2006-0009448

PATIENT
  Age: 32 Year
  Sex: Male

DRUGS (3)
  1. TRUVADA [Suspect]
     Indication: HIV INFECTION
  2. KALETRA [Concomitant]
  3. TMP/SMX(BACTRIM/00086101/) [Concomitant]

REACTIONS (4)
  - BLOOD CREATININE INCREASED [None]
  - FATIGUE [None]
  - ORAL PAIN [None]
  - PYREXIA [None]
